FAERS Safety Report 24824257 (Version 5)
Quarter: 2025Q1

REPORT INFORMATION
  Report Type: Spontaneous
  Country: BE (occurrence: BE)
  Receive Date: 20250109
  Receipt Date: 20250226
  Transmission Date: 20250409
  Serious: Yes (Other)
  Sender: TEVA
  Company Number: BE-TEVA-VS-3284080

PATIENT
  Age: 42 Year
  Sex: Female
  Weight: 75 kg

DRUGS (3)
  1. MORPHINE [Suspect]
     Active Substance: MORPHINE
     Indication: Nerve injury
     Route: 048
     Dates: start: 20220419
  2. DIAZEPAM [Concomitant]
     Active Substance: DIAZEPAM
     Indication: Product used for unknown indication
     Route: 048
     Dates: start: 2018
  3. DAFALGAN CODEINE [Concomitant]
     Active Substance: ACETAMINOPHEN\CODEINE PHOSPHATE
     Indication: Product used for unknown indication
     Dosage: 500MG/30MG
     Route: 048
     Dates: start: 2021

REACTIONS (5)
  - Tooth loss [Unknown]
  - Tooth erosion [Unknown]
  - Teeth brittle [Unknown]
  - Impaired quality of life [Unknown]
  - Drug abuse [Unknown]

NARRATIVE: CASE EVENT DATE: 20220101
